FAERS Safety Report 17017499 (Version 1)
Quarter: 2019Q4

REPORT INFORMATION
  Report Type: Spontaneous
  Country: US (occurrence: US)
  Receive Date: 20191006
  Receipt Date: 20191006
  Transmission Date: 20200122
  Serious: No
  Sender: FDA-Public Use
  Company Number: None

PATIENT
  Sex: Female

DRUGS (1)
  1. OCTREOTIDE 50 1 ML PF SYR 50MCG/ML MYLAN INSTITUTIONAL [Suspect]
     Active Substance: OCTREOTIDE
     Indication: ANAEMIA
     Dosage: ?          OTHER STRENGTH:50MCG/ML;?
     Route: 058
     Dates: start: 20190822

REACTIONS (1)
  - Mobility decreased [None]
